FAERS Safety Report 18242802 (Version 1)
Quarter: 2020Q3

REPORT INFORMATION
  Report Type: Spontaneous
  Country: US (occurrence: US)
  Receive Date: 20200908
  Receipt Date: 20200908
  Transmission Date: 20201103
  Serious: Yes (Other)
  Sender: FDA-Public Use
  Company Number: US-TARO-2019TAR00619

PATIENT
  Sex: Male

DRUGS (2)
  1. WARFARIN SODIUM TABLETS USP 2MG [Suspect]
     Active Substance: WARFARIN SODIUM
     Indication: ANTICOAGULANT THERAPY
     Dosage: ALTERNATES 2 MG AND 3 MG IN HIS THERAPY
     Route: 048
  2. WARFARIN SODIUM TABLETS USP 3MG [Suspect]
     Active Substance: WARFARIN SODIUM
     Dosage: ALTERNATES 3 MG AND 2 MG IN HIS THERAPY
     Route: 048

REACTIONS (6)
  - Haemorrhage [Not Recovered/Not Resolved]
  - Wound [Unknown]
  - International normalised ratio fluctuation [Unknown]
  - Unevaluable event [Unknown]
  - Product storage error [Recovered/Resolved]
  - Contusion [Not Recovered/Not Resolved]
